FAERS Safety Report 7499330-9 (Version None)
Quarter: 2011Q2

REPORT INFORMATION
  Report Type: 
  Country: None (occurrence: None)
  Receive Date: 20110524
  Receipt Date: 20110504
  Transmission Date: 20111010
  Serious: No
  Sender: FDA-Public Use
  Company Number: US-B.I. PHARMACEUTICALS,INC./RIDGEFIELD-2011-BP-08176BP

PATIENT
  Age: 78 Year
  Sex: Female
  Weight: 95.25 kg

DRUGS (8)
  1. TRICOR [Concomitant]
     Dosage: 145 MG
  2. ACTOS [Concomitant]
     Dosage: 7.5 MG
  3. AMIODARONE HCL [Concomitant]
     Dosage: 400 MG
     Dates: start: 20110223
  4. PRADAXA [Suspect]
     Indication: ATRIAL FIBRILLATION
     Dosage: 300 MG
     Dates: start: 20110223, end: 20110301
  5. STATIN [Concomitant]
  6. AMLODIPINE BESYLATE AND BENAZEPRIL HCL [Concomitant]
     Dosage: 5/10
  7. BENZOPRYL [Concomitant]
  8. VYTORIN [Concomitant]
     Dosage: 10/10

REACTIONS (4)
  - ACTIVATED PARTIAL THROMBOPLASTIN TIME PROLONGED [None]
  - INTERNATIONAL NORMALISED RATIO INCREASED [None]
  - PROTHROMBIN TIME PROLONGED [None]
  - BLOOD URINE PRESENT [None]
